FAERS Safety Report 9734362 (Version 4)
Quarter: 2013Q4

REPORT INFORMATION
  Report Type: Report from Study
  Country: CA (occurrence: CA)
  Receive Date: 20131206
  Receipt Date: 20131211
  Transmission Date: 20140711
  Serious: Yes (Other)
  Sender: FDA-Public Use
  Company Number: CA-ROCHE-1291247

PATIENT
  Age: 63 Year
  Sex: Male
  Weight: 82.6 kg

DRUGS (8)
  1. AVASTIN [Suspect]
     Indication: GLIOBLASTOMA MULTIFORME
     Route: 042
     Dates: start: 20130918
  2. DIPHENHYDRAMINE HCL [Concomitant]
     Indication: PREMEDICATION
     Route: 048
     Dates: start: 20130918
  3. ACETAMINOPHEN [Concomitant]
     Indication: PREMEDICATION
     Route: 048
     Dates: start: 20130918
  4. PREVACID [Concomitant]
     Route: 065
     Dates: start: 2002
  5. SYNTHROID [Concomitant]
  6. EZETROL [Concomitant]
  7. PRAVASTATIN [Concomitant]
  8. TEMODAL [Concomitant]
     Route: 065
     Dates: start: 201107

REACTIONS (3)
  - Cerebral disorder [Unknown]
  - Hypertension [Unknown]
  - Disease progression [Unknown]
